FAERS Safety Report 7209886-9 (Version None)
Quarter: 2011Q1

REPORT INFORMATION
  Report Type: 
  Country: None (occurrence: None)
  Receive Date: 20110105
  Receipt Date: 20101222
  Transmission Date: 20110831
  Serious: Yes (Other)
  Sender: FDA-Public Use
  Company Number: US-BIOGENIDEC-2010BI036937

PATIENT
  Age: 45 Year
  Sex: Male
  Weight: 79 kg

DRUGS (13)
  1. REQUIP [Concomitant]
     Indication: RESTLESS LEGS SYNDROME
     Route: 048
     Dates: start: 20080521
  2. CYMBALTA [Concomitant]
     Indication: DEPRESSION
     Route: 048
     Dates: start: 20100201
  3. LYRICA [Concomitant]
     Route: 048
  4. AMBIEN [Concomitant]
     Indication: INSOMNIA
     Route: 048
     Dates: start: 20100611
  5. WELLBUTRIN [Concomitant]
     Route: 048
     Dates: start: 20101001, end: 20101001
  6. COMBIVENT [Concomitant]
     Route: 055
     Dates: start: 20080818
  7. PROPRANOLOL [Concomitant]
     Indication: HYPERTENSION
     Route: 048
     Dates: start: 20080428
  8. AMPYRA [Concomitant]
     Dates: start: 20101001, end: 20101001
  9. TYSABRI [Suspect]
     Indication: MULTIPLE SCLEROSIS
     Route: 042
     Dates: start: 20081223
  10. PROPRANOLOL [Concomitant]
     Indication: HEADACHE
     Route: 048
     Dates: start: 20080428
  11. BACLOFEN [Concomitant]
     Indication: MULTIPLE SCLEROSIS
     Route: 048
     Dates: start: 20090707
  12. AMANTADINE [Concomitant]
     Route: 048
     Dates: start: 20091110
  13. OMEPRAZOLE [Concomitant]
     Indication: GASTROOESOPHAGEAL REFLUX DISEASE
     Route: 048
     Dates: start: 20080529

REACTIONS (1)
  - GRAND MAL CONVULSION [None]
